FAERS Safety Report 23912365 (Version 5)
Quarter: 2024Q4

REPORT INFORMATION
  Report Type: Spontaneous
  Country: US (occurrence: US)
  Receive Date: 20240528
  Receipt Date: 20241015
  Transmission Date: 20250115
  Serious: No
  Sender: THERATECHNOLOGIES
  Company Number: US-THERATECHNOLOGIES INC.-2024-THE-TES-000092

PATIENT

DRUGS (1)
  1. EGRIFTA SV [Suspect]
     Active Substance: TESAMORELIN ACETATE
     Indication: Lipodystrophy acquired
     Dosage: 1.4 MG, QD, RECONSTITUTE AND INJECT 0.35 ML
     Route: 058
     Dates: start: 20240320

REACTIONS (6)
  - Frequent bowel movements [Unknown]
  - Weight increased [Unknown]
  - Abdominal distension [Not Recovered/Not Resolved]
  - Peripheral swelling [Unknown]
  - Injection site pain [Recovered/Resolved]
  - Therapeutic product effect incomplete [Not Recovered/Not Resolved]

NARRATIVE: CASE EVENT DATE: 20240301
